FAERS Safety Report 7600691-8 (Version None)
Quarter: 2011Q3

REPORT INFORMATION
  Report Type: 
  Country: None (occurrence: None)
  Receive Date: 20110706
  Receipt Date: 20110706
  Transmission Date: 20111222
  Serious: Yes (Hospitalization)
  Sender: FDA-Public Use
  Company Number: None

PATIENT
  Sex: Female
  Weight: 65.7716 kg

DRUGS (2)
  1. AVELOX [Suspect]
     Indication: MULTIPLE ALLERGIES
     Dosage: 1 TABLET ONCE
     Dates: start: 20110520
  2. PREDNISONE [Suspect]
     Indication: MULTIPLE ALLERGIES
     Dosage: 1 TABLET ONCE
     Dates: start: 20110520

REACTIONS (2)
  - PHOTOPSIA [None]
  - SYNCOPE [None]
